FAERS Safety Report 9700852 (Version 1)
Quarter: 2013Q4

REPORT INFORMATION
  Report Type: Spontaneous
  Country: US (occurrence: US)
  Receive Date: 20131121
  Receipt Date: 20131121
  Transmission Date: 20140711
  Serious: No
  Sender: FDA-Public Use
  Company Number: US-PFIZER INC-2013331808

PATIENT
  Sex: Female

DRUGS (1)
  1. AROMASIN [Suspect]
     Indication: BREAST CANCER
     Dosage: UNK

REACTIONS (6)
  - Musculoskeletal pain [Unknown]
  - Pain in extremity [Unknown]
  - Limb discomfort [Unknown]
  - Arthralgia [Unknown]
  - Arthritis [Unknown]
  - Carpal tunnel syndrome [Unknown]
